FAERS Safety Report 14381794 (Version 1)
Quarter: 2018Q1

REPORT INFORMATION
  Report Type: Spontaneous
  Country: US (occurrence: US)
  Receive Date: 20180111
  Receipt Date: 20180111
  Transmission Date: 20180509
  Serious: Yes (Hospitalization)
  Sender: FDA-Public Use
  Company Number: None

PATIENT
  Age: 84 Year
  Sex: Female
  Weight: 95.3 kg

DRUGS (1)
  1. LOVENOX [Suspect]
     Active Substance: ENOXAPARIN SODIUM
     Indication: MYOCARDIAL ISCHAEMIA
     Route: 058
     Dates: start: 20180105, end: 20180106

REACTIONS (3)
  - Therapy change [None]
  - Abdominal pain upper [None]
  - Abdominal wall haematoma [None]

NARRATIVE: CASE EVENT DATE: 20180106
